FAERS Safety Report 4980953-3 (Version None)
Quarter: 2006Q2

REPORT INFORMATION
  Report Type: 
  Country: None (occurrence: None)
  Receive Date: 20060418
  Receipt Date: 20060329
  Transmission Date: 20061013
  Serious: Yes (Hospitalization, Other)
  Sender: FDA-Public Use
  Company Number: US_010361224

PATIENT
  Age: 49 Year
  Sex: Female
  Weight: 39.5 kg

DRUGS (6)
  1. HUMULIN (HUMAN INSULIN (RDNA ORIGIN) [Suspect]
     Indication: DIABETES MELLITUS
     Dosage: SUBCUTANEOUS
     Route: 058
     Dates: start: 19300101, end: 20010201
  2. HUMULIN R [Suspect]
     Indication: DIABETES MELLITUS
     Dosage: SUBCUTANEOUS
     Route: 058
     Dates: start: 19930101
  3. ILETIN [Suspect]
     Indication: DIABETES MELLITUS
     Dosage: DAILY (1/D)
  4. ILETIN [Suspect]
     Indication: DIABETES MELLITUS
     Dosage: 10 U, DAILY (1/D)
  5. ILETIN [Suspect]
     Indication: DIABETES MELLITUS INSULIN-DEPENDENT
  6. ILETIN NPH(INSULIN, ANIMAL) [Suspect]
     Indication: DIABETES MELLITUS INSULIN-DEPENDENT

REACTIONS (7)
  - BLOOD GLUCOSE DECREASED [None]
  - BLOOD GLUCOSE FLUCTUATION [None]
  - BLOOD GLUCOSE INCREASED [None]
  - BLOOD KETONE BODY PRESENT [None]
  - CARDIAC DISORDER [None]
  - GLUCOSE URINE PRESENT [None]
  - URINE KETONE BODY PRESENT [None]
